FAERS Safety Report 9230615 (Version 3)
Quarter: 2013Q2

REPORT INFORMATION
  Report Type: Spontaneous
  Country: US (occurrence: US)
  Receive Date: 20130415
  Receipt Date: 20130614
  Transmission Date: 20140414
  Serious: Yes (Hospitalization, Other)
  Sender: FDA-Public Use
  Company Number: US-SANOFI-AVENTIS-2013SA037205

PATIENT
  Age: 67 Year
  Sex: Male

DRUGS (5)
  1. AUBAGIO [Suspect]
     Indication: MULTIPLE SCLEROSIS
     Route: 048
     Dates: start: 201303
  2. BACLOFEN [Concomitant]
  3. VITAMIN D [Concomitant]
     Dosage: DOSE:2000 UNIT(S)
  4. FISH OIL [Concomitant]
     Dosage: CONC 1000 MG SOFTGEL
  5. MULTIVITAMINS [Concomitant]

REACTIONS (3)
  - Multiple sclerosis relapse [Unknown]
  - Pneumonia [Unknown]
  - Night sweats [Not Recovered/Not Resolved]
